FAERS Safety Report 19097236 (Version 1)
Quarter: 2021Q2

REPORT INFORMATION
  Report Type: Spontaneous
  Country: US (occurrence: US)
  Receive Date: 20210406
  Receipt Date: 20210406
  Transmission Date: 20210717
  Serious: No
  Sender: FDA-Public Use
  Company Number: US-TORRENT-00011017

PATIENT
  Sex: Female

DRUGS (1)
  1. ISOSORBIDE MONONITRATE. [Suspect]
     Active Substance: ISOSORBIDE MONONITRATE
     Indication: PRODUCT USED FOR UNKNOWN INDICATION
     Dosage: IN MORNING

REACTIONS (7)
  - Arthralgia [Unknown]
  - Headache [Unknown]
  - Arterial disorder [Unknown]
  - Hyperhidrosis [Unknown]
  - Pain [Unknown]
  - Freezing phenomenon [Unknown]
  - Muscle spasms [Unknown]
